FAERS Safety Report 17377053 (Version 1)
Quarter: 2020Q1

REPORT INFORMATION
  Report Type: Spontaneous
  Country: US (occurrence: US)
  Receive Date: 20200122
  Receipt Date: 20200122
  Transmission Date: 20200409
  Serious: Yes (Disabling)
  Sender: FDA-Public Use
  Company Number: None

PATIENT

DRUGS (1)
  1. RECLAST [Suspect]
     Active Substance: ZOLEDRONIC ACID
     Dates: start: 20191105

REACTIONS (12)
  - Mobility decreased [None]
  - Dizziness [None]
  - Vomiting [None]
  - Bedridden [None]
  - Alopecia [None]
  - Gait disturbance [None]
  - Chills [None]
  - Malaise [None]
  - Tremor [None]
  - Pyrexia [None]
  - Fatigue [None]
  - Stomatitis [None]

NARRATIVE: CASE EVENT DATE: 20191105
